FAERS Safety Report 4677446-X (Version None)
Quarter: 2005Q2

REPORT INFORMATION
  Report Type: 
  Country: None (occurrence: None)
  Receive Date: 20050526
  Receipt Date: 20050526
  Transmission Date: 20051028
  Serious: Yes (Other)
  Sender: FDA-Public Use
  Company Number: None

PATIENT
  Sex: Female

DRUGS (2)
  1. ENBREL [Suspect]
     Indication: ARTHRITIS
     Dosage: 50MG    TWICE A WEEK    SUBCUTANEO
     Route: 058
     Dates: start: 20050415, end: 20050525
  2. ENBREL [Suspect]
     Indication: PSORIASIS
     Dosage: 50MG    TWICE A WEEK    SUBCUTANEO
     Route: 058
     Dates: start: 20050415, end: 20050525

REACTIONS (2)
  - PRURITUS [None]
  - RASH [None]
